FAERS Safety Report 16763387 (Version 1)
Quarter: 2019Q3

REPORT INFORMATION
  Report Type: Spontaneous
  Country: GB (occurrence: GB)
  Receive Date: 20190902
  Receipt Date: 20190902
  Transmission Date: 20191005
  Serious: Yes (Other)
  Sender: FDA-Public Use
  Company Number: GB-TEVA-2019-GB-1099772

PATIENT
  Age: 63 Year
  Sex: Female
  Weight: 45 kg

DRUGS (6)
  1. CALCIUM CARBONATE. [Concomitant]
     Active Substance: CALCIUM CARBONATE
     Dosage: EXCEPT ON THE MORNING ALEN...
     Dates: start: 20190503
  2. ALENDRONIC ACID [Suspect]
     Active Substance: ALENDRONIC ACID
     Dosage: 70 MG
     Dates: start: 20190603
  3. LAMICTAL [Concomitant]
     Active Substance: LAMOTRIGINE
     Dosage: OR AS DIRECTED BY NEUROLOGY
     Dates: start: 20180705
  4. KEPPRA [Concomitant]
     Active Substance: LEVETIRACETAM
     Dosage: MORNING AND EVENING
     Dates: start: 20180705
  5. TOPIRAMATE. [Concomitant]
     Active Substance: TOPIRAMATE
     Dates: start: 20181208
  6. ZOLMITRIPTAN. [Concomitant]
     Active Substance: ZOLMITRIPTAN
     Dosage: AS DIRECTED
     Dates: start: 20180705

REACTIONS (1)
  - Epilepsy [Recovering/Resolving]

NARRATIVE: CASE EVENT DATE: 20190603
